FAERS Safety Report 16508306 (Version 1)
Quarter: 2019Q3

REPORT INFORMATION
  Report Type: Spontaneous
  Country: US (occurrence: US)
  Receive Date: 20190702
  Receipt Date: 20190702
  Transmission Date: 20191004
  Serious: No
  Sender: FDA-Public Use
  Company Number: US-ROCHE-2190172

PATIENT
  Sex: Female
  Weight: 63.56 kg

DRUGS (9)
  1. EFFEXOR [Concomitant]
     Active Substance: VENLAFAXINE HYDROCHLORIDE
     Route: 048
     Dates: start: 20180529, end: 20180924
  2. XELODA [Suspect]
     Active Substance: CAPECITABINE
     Dosage: ONGOING; YES
     Route: 048
     Dates: start: 20180607
  3. ZOFRAN [Concomitant]
     Active Substance: ONDANSETRON HYDROCHLORIDE
     Route: 048
     Dates: start: 20180529, end: 20180924
  4. FLUZONE [INFLUENZA VACCINE] [Concomitant]
     Route: 030
     Dates: start: 20181125
  5. XELODA [Suspect]
     Active Substance: CAPECITABINE
     Indication: BREAST CANCER
     Dosage: 3 TABS; ONGOING: YES
     Route: 048
     Dates: start: 20180611
  6. XELODA [Suspect]
     Active Substance: CAPECITABINE
     Dosage: 3TABS 2X DAILY FOR 14 DAYS
     Route: 048
     Dates: start: 20180607
  7. XELODA [Suspect]
     Active Substance: CAPECITABINE
     Route: 048
     Dates: start: 20180924, end: 20180924
  8. PERCOCET [Concomitant]
     Active Substance: ACETAMINOPHEN\OXYCODONE HYDROCHLORIDE
     Dosage: ONGOING: YES
     Route: 048
     Dates: start: 20180529
  9. LORAZEPAM. [Concomitant]
     Active Substance: LORAZEPAM
     Route: 048
     Dates: start: 20180529, end: 20180924

REACTIONS (2)
  - Palmar-plantar erythrodysaesthesia syndrome [Unknown]
  - Pain in extremity [Unknown]
